FAERS Safety Report 16681389 (Version 1)
Quarter: 2019Q3

REPORT INFORMATION
  Report Type: Spontaneous
  Country: CA (occurrence: CA)
  Receive Date: 20190808
  Receipt Date: 20190808
  Transmission Date: 20191004
  Serious: No
  Sender: FDA-Public Use
  Company Number: CA-BEH-2019098853

PATIENT
  Age: 68 Year
  Sex: Female

DRUGS (2)
  1. ALBUREX [Suspect]
     Active Substance: ALBUMIN HUMAN
     Dosage: 100 ML, TOT
     Route: 041
  2. ALBUREX [Suspect]
     Active Substance: ALBUMIN HUMAN
     Indication: PYREXIA
     Dosage: 100 ML, TOT
     Route: 041
     Dates: start: 20181224, end: 20181225

REACTIONS (4)
  - Pyrexia [Recovered/Resolved]
  - No adverse event [Unknown]
  - Febrile nonhaemolytic transfusion reaction [Recovered/Resolved]
  - Product use in unapproved indication [Unknown]

NARRATIVE: CASE EVENT DATE: 20181225
